FAERS Safety Report 6772529-2 (Version None)
Quarter: 2010Q2

REPORT INFORMATION
  Report Type: 
  Country: None (occurrence: None)
  Receive Date: 20100616
  Receipt Date: 20091027
  Transmission Date: 20101027
  Serious: No
  Sender: FDA-Public Use
  Company Number: US-ASTRAZENECA-2009SE22997

PATIENT
  Age: 52 Year
  Sex: Female

DRUGS (9)
  1. PULMICORT [Suspect]
     Indication: ASTHMA
     Route: 055
     Dates: end: 20080801
  2. PULMICORT [Suspect]
     Route: 055
     Dates: start: 20081201
  3. PULMICORT [Suspect]
     Route: 055
     Dates: start: 20091026
  4. NEXIUM [Suspect]
     Indication: DYSPEPSIA
     Route: 048
     Dates: start: 20091026
  5. XOPENEX [Concomitant]
     Indication: ASTHMA
  6. ZYRTEC [Concomitant]
     Indication: HYPERSENSITIVITY
  7. BENADRYL [Concomitant]
  8. ALLERGY SHOTS [Concomitant]
     Indication: HYPERSENSITIVITY
  9. TUMS [Concomitant]
     Indication: GASTROOESOPHAGEAL REFLUX DISEASE

REACTIONS (4)
  - DYSPEPSIA [None]
  - GASTROOESOPHAGEAL REFLUX DISEASE [None]
  - INSOMNIA [None]
  - THROAT TIGHTNESS [None]
